FAERS Safety Report 16576445 (Version 1)
Quarter: 2019Q3

REPORT INFORMATION
  Report Type: Spontaneous
  Country: US (occurrence: US)
  Receive Date: 20190715
  Receipt Date: 20190715
  Transmission Date: 20191004
  Serious: Yes (Disabling, Other)
  Sender: FDA-Public Use
  Company Number: None

PATIENT
  Age: 50 Year
  Sex: Male
  Weight: 67.5 kg

DRUGS (9)
  1. LOSARTAN 25MG [Concomitant]
     Active Substance: LOSARTAN
  2. CRESTOR 40MG [Concomitant]
  3. PLAVIX [Concomitant]
     Active Substance: CLOPIDOGREL BISULFATE
  4. GABAPENTIN. [Suspect]
     Active Substance: GABAPENTIN
     Indication: INTERVERTEBRAL DISC DEGENERATION
     Route: 048
     Dates: start: 20070309, end: 20180331
  5. FLOMAX 0.4MG [Concomitant]
  6. TESTOSTERONE IM INJECTION 200MG [Concomitant]
  7. MEDICAL MARIJUANA [Concomitant]
     Active Substance: CANNABIS SATIVA SUBSP. INDICA TOP
  8. METOPROLOL SUCCINATE 25MG [Concomitant]
     Active Substance: METOPROLOL SUCCINATE
  9. DULOXETINE 60MG [Concomitant]
     Active Substance: DULOXETINE

REACTIONS (3)
  - Visual impairment [None]
  - Vision blurred [None]
  - Diplopia [None]

NARRATIVE: CASE EVENT DATE: 20070309
